FAERS Safety Report 9442114 (Version 4)
Quarter: 2016Q4

REPORT INFORMATION
  Report Type: Report from Study
  Country: JP (occurrence: JP)
  Receive Date: 20130806
  Receipt Date: 20161220
  Transmission Date: 20170207
  Serious: Yes (Death, Other)
  Sender: FDA-Public Use
  Company Number: PHHY2013JP083253

PATIENT
  Age: 61 Year
  Sex: Male
  Weight: 51 kg

DRUGS (132)
  1. CERTICAN [Suspect]
     Active Substance: EVEROLIMUS
     Dosage: 3.25 MG, DAILY
     Route: 048
     Dates: start: 20111118, end: 20111121
  2. CERTICAN [Suspect]
     Active Substance: EVEROLIMUS
     Dosage: 3.5 MG, DAILY
     Route: 048
     Dates: start: 20111122, end: 20111123
  3. CERTICAN [Suspect]
     Active Substance: EVEROLIMUS
     Dosage: 1.75 MG DAILY
     Route: 048
     Dates: start: 20120124, end: 20120124
  4. CERTICAN [Suspect]
     Active Substance: EVEROLIMUS
     Dosage: 1.75 MG DAILY
     Route: 048
     Dates: start: 20120210, end: 20120221
  5. CERTICAN [Suspect]
     Active Substance: EVEROLIMUS
     Dosage: 2 MG, QD
     Route: 048
     Dates: start: 20111101, end: 20111103
  6. CERTICAN [Suspect]
     Active Substance: EVEROLIMUS
     Dosage: 3.25 MG, QD
     Route: 048
     Dates: start: 20111208, end: 20111208
  7. CERTICAN [Suspect]
     Active Substance: EVEROLIMUS
     Route: 048
     Dates: start: 20111221, end: 20111223
  8. CERTICAN [Suspect]
     Active Substance: EVEROLIMUS
     Route: 048
     Dates: start: 20120124, end: 20120124
  9. PREDONINE [Suspect]
     Active Substance: PREDNISOLONE\PREDNISOLONE ACETATE\PREDNISOLONE SODIUM SUCCINATE
     Indication: HEART TRANSPLANT
     Route: 065
     Dates: start: 20110723
  10. PREDONINE [Suspect]
     Active Substance: PREDNISOLONE\PREDNISOLONE ACETATE\PREDNISOLONE SODIUM SUCCINATE
     Dosage: 30 MG, DAILY
     Route: 042
     Dates: start: 20111202, end: 20111206
  11. PREDONINE [Suspect]
     Active Substance: PREDNISOLONE\PREDNISOLONE ACETATE\PREDNISOLONE SODIUM SUCCINATE
     Dosage: 20 MG, DAILY
     Route: 042
     Dates: start: 20111212, end: 20111217
  12. PREDNISOLONE. [Concomitant]
     Active Substance: PREDNISOLONE
     Dosage: 10 MG, UNK
     Route: 048
  13. MYCOPHENOLATE MOFETIL. [Concomitant]
     Active Substance: MYCOPHENOLATE MOFETIL
     Indication: HEART TRANSPLANT
     Dosage: 250 MG, UNK
     Route: 048
     Dates: start: 20111014
  14. MYCOPHENOLATE MOFETIL. [Concomitant]
     Active Substance: MYCOPHENOLATE MOFETIL
     Dosage: 1000 MG, UNK
     Route: 048
  15. MYCOPHENOLATE MOFETIL. [Concomitant]
     Active Substance: MYCOPHENOLATE MOFETIL
     Dosage: 20000 MG, UNK
     Route: 048
     Dates: end: 20120308
  16. PROGRAF [Concomitant]
     Active Substance: TACROLIMUS\TACROLIMUS ANHYDROUS
     Dosage: 1.6 MG, UNK
     Route: 048
  17. PROGRAF [Concomitant]
     Active Substance: TACROLIMUS\TACROLIMUS ANHYDROUS
     Dosage: 1.6 MG, UNK
     Route: 048
  18. PROGRAF [Concomitant]
     Active Substance: TACROLIMUS\TACROLIMUS ANHYDROUS
     Dosage: 2.2 MG, UNK
     Route: 048
  19. PROGRAF [Concomitant]
     Active Substance: TACROLIMUS\TACROLIMUS ANHYDROUS
     Dosage: 1 MG, UNK
     Route: 048
  20. PROGRAF [Concomitant]
     Active Substance: TACROLIMUS\TACROLIMUS ANHYDROUS
     Dosage: 1.4 MG, UNK
     Route: 048
  21. CERTICAN [Suspect]
     Active Substance: EVEROLIMUS
     Dosage: 2 MG, DAILY
     Route: 048
     Dates: start: 20111101, end: 20111103
  22. CERTICAN [Suspect]
     Active Substance: EVEROLIMUS
     Dosage: 3.25 MG, UNK
     Route: 048
     Dates: start: 20111208, end: 20111208
  23. CERTICAN [Suspect]
     Active Substance: EVEROLIMUS
     Dosage: 1.75 MG DAILY
     Route: 048
     Dates: start: 20111224, end: 20111225
  24. CERTICAN [Suspect]
     Active Substance: EVEROLIMUS
     Dosage: 1.5 MG DAILY
     Route: 048
     Dates: start: 20120203, end: 20120209
  25. CERTICAN [Suspect]
     Active Substance: EVEROLIMUS
     Dosage: 1.5 MG, QD
     Route: 048
     Dates: start: 20111022, end: 20111026
  26. CERTICAN [Suspect]
     Active Substance: EVEROLIMUS
     Route: 048
     Dates: start: 20120121, end: 20120123
  27. CERTICAN [Suspect]
     Active Substance: EVEROLIMUS
     Route: 048
     Dates: start: 20120128, end: 20120129
  28. CERTICAN [Suspect]
     Active Substance: EVEROLIMUS
     Route: 048
     Dates: start: 20120210, end: 20120221
  29. CERTICAN [Suspect]
     Active Substance: EVEROLIMUS
     Route: 048
     Dates: start: 20120223, end: 20120226
  30. PREDNISOLONE. [Concomitant]
     Active Substance: PREDNISOLONE
     Indication: HEART TRANSPLANT
     Dosage: 15 MG,
     Route: 048
     Dates: start: 20111028
  31. PROGRAF [Concomitant]
     Active Substance: TACROLIMUS\TACROLIMUS ANHYDROUS
     Dosage: 2.0 MG, UNK
     Route: 048
  32. PROGRAF [Concomitant]
     Active Substance: TACROLIMUS\TACROLIMUS ANHYDROUS
     Dosage: 2.8 MG, UNK
     Route: 048
  33. PROGRAF [Concomitant]
     Active Substance: TACROLIMUS\TACROLIMUS ANHYDROUS
     Dosage: 0.7 MG, UNK
     Route: 048
  34. PROGRAF [Concomitant]
     Active Substance: TACROLIMUS\TACROLIMUS ANHYDROUS
     Dosage: 0.7 MG, UNK
     Route: 048
  35. PROGRAF [Concomitant]
     Active Substance: TACROLIMUS\TACROLIMUS ANHYDROUS
     Dosage: 0.7 MG, UNK
     Route: 048
  36. CERTICAN [Suspect]
     Active Substance: EVEROLIMUS
     Dosage: 3 MG DAILY
     Route: 048
     Dates: start: 20111209, end: 20111211
  37. CERTICAN [Suspect]
     Active Substance: EVEROLIMUS
     Dosage: 2.75 MG DAILY
     Route: 048
     Dates: start: 20111212, end: 20111216
  38. CERTICAN [Suspect]
     Active Substance: EVEROLIMUS
     Dosage: 2.25 MG, DAILY
     Route: 048
     Dates: start: 20120222, end: 20120222
  39. CERTICAN [Suspect]
     Active Substance: EVEROLIMUS
     Dosage: 3.75 MG, QD
     Route: 048
     Dates: start: 20111124, end: 20111130
  40. CERTICAN [Suspect]
     Active Substance: EVEROLIMUS
     Dosage: 2.75 MG, QD
     Route: 048
     Dates: start: 20111212, end: 20111216
  41. FORTEO [Suspect]
     Active Substance: TERIPARATIDE
     Indication: PROPHYLAXIS
     Dosage: 20 UG, UNK
     Route: 058
     Dates: start: 20120224, end: 20120304
  42. PREDONINE [Suspect]
     Active Substance: PREDNISOLONE\PREDNISOLONE ACETATE\PREDNISOLONE SODIUM SUCCINATE
     Dosage: 15 MG DAILY
     Route: 042
     Dates: start: 20111217, end: 20120130
  43. PREDONINE [Suspect]
     Active Substance: PREDNISOLONE\PREDNISOLONE ACETATE\PREDNISOLONE SODIUM SUCCINATE
     Dosage: 25 MG DAILY
     Route: 042
     Dates: start: 20120208, end: 20120212
  44. PREDONINE [Suspect]
     Active Substance: PREDNISOLONE\PREDNISOLONE ACETATE\PREDNISOLONE SODIUM SUCCINATE
     Dosage: 17.5 MG, DAILY
     Route: 042
     Dates: start: 20120220, end: 20120307
  45. CORTICOSTEROIDS [Concomitant]
     Active Substance: CORTICOSTEROID NOS
     Indication: PRODUCT USED FOR UNKNOWN INDICATION
     Dosage: UNK
     Route: 065
  46. PROGRAF [Concomitant]
     Active Substance: TACROLIMUS\TACROLIMUS ANHYDROUS
     Dosage: 2.4 MG, UNK
     Route: 048
  47. PROGRAF [Concomitant]
     Active Substance: TACROLIMUS\TACROLIMUS ANHYDROUS
     Dosage: 1.4 MG, UNK
     Route: 048
  48. PROGRAF [Concomitant]
     Active Substance: TACROLIMUS\TACROLIMUS ANHYDROUS
     Dosage: 1 MG, UNK
     Route: 048
  49. PROGRAF [Concomitant]
     Active Substance: TACROLIMUS\TACROLIMUS ANHYDROUS
     Dosage: 1.4 MG, UNK
     Route: 048
  50. CERTICAN [Suspect]
     Active Substance: EVEROLIMUS
     Dosage: 3.5 MG, DAILY
     Route: 048
     Dates: start: 20111201, end: 20111207
  51. CERTICAN [Suspect]
     Active Substance: EVEROLIMUS
     Dosage: 1.5 MG DAILY
     Route: 048
     Dates: start: 20120121, end: 20120123
  52. CERTICAN [Suspect]
     Active Substance: EVEROLIMUS
     Dosage: 1 MG DAILY
     Route: 048
     Dates: start: 20120125, end: 20120127
  53. CERTICAN [Suspect]
     Active Substance: EVEROLIMUS
     Route: 048
     Dates: start: 20111228, end: 20111231
  54. FORTEO [Suspect]
     Active Substance: TERIPARATIDE
     Indication: OSTEOPOROSIS
  55. BONALON [Concomitant]
     Active Substance: ALENDRONATE SODIUM
     Indication: OSTEOPOROSIS
     Dosage: 35 MG, UNK
     Route: 048
     Dates: start: 20120109, end: 20120223
  56. MYCOPHENOLATE MOFETIL. [Concomitant]
     Active Substance: MYCOPHENOLATE MOFETIL
     Dosage: 750 MG, UNK
     Route: 048
  57. PROGRAF [Concomitant]
     Active Substance: TACROLIMUS\TACROLIMUS ANHYDROUS
     Indication: HEART TRANSPLANT
     Dosage: 1.2 MG, UNK
     Route: 048
     Dates: start: 20111014
  58. PROGRAF [Concomitant]
     Active Substance: TACROLIMUS\TACROLIMUS ANHYDROUS
     Dosage: 1.4 MG, UNK
     Route: 048
  59. PROGRAF [Concomitant]
     Active Substance: TACROLIMUS\TACROLIMUS ANHYDROUS
     Dosage: 1.2 MG, UNK
     Route: 048
  60. PROGRAF [Concomitant]
     Active Substance: TACROLIMUS\TACROLIMUS ANHYDROUS
     Dosage: 1.4 MG, UNK
     Route: 048
  61. PROGRAF [Concomitant]
     Active Substance: TACROLIMUS\TACROLIMUS ANHYDROUS
     Dosage: 0.5 MG, UNK
     Route: 048
  62. CERTICAN [Suspect]
     Active Substance: EVEROLIMUS
     Dosage: 2.5 MG, DAILY
     Route: 048
     Dates: start: 20111108, end: 20111113
  63. CERTICAN [Suspect]
     Active Substance: EVEROLIMUS
     Dosage: 1.5 MG, DAILY
     Route: 048
     Dates: start: 20111226, end: 20111227
  64. CERTICAN [Suspect]
     Active Substance: EVEROLIMUS
     Dosage: 0.75 MG DAILY
     Route: 048
     Dates: start: 20120120, end: 20120120
  65. CERTICAN [Suspect]
     Active Substance: EVEROLIMUS
     Dosage: 0.75 MG, DAILY
     Route: 048
     Dates: start: 20120227, end: 20120228
  66. CERTICAN [Suspect]
     Active Substance: EVEROLIMUS
     Dosage: 2.25 MG, QD
     Route: 048
     Dates: start: 20111104, end: 20111107
  67. CERTICAN [Suspect]
     Active Substance: EVEROLIMUS
     Dosage: 3 MG, QD
     Route: 048
     Dates: start: 20111209, end: 20111211
  68. CERTICAN [Suspect]
     Active Substance: EVEROLIMUS
     Dosage: 2.5 MG, QD
     Route: 048
     Dates: start: 20111217, end: 20111218
  69. CERTICAN [Suspect]
     Active Substance: EVEROLIMUS
     Route: 048
     Dates: start: 20111219, end: 20111220
  70. CERTICAN [Suspect]
     Active Substance: EVEROLIMUS
     Route: 048
     Dates: start: 20111226, end: 20111227
  71. CERTICAN [Suspect]
     Active Substance: EVEROLIMUS
     Route: 048
     Dates: start: 20120229, end: 20120307
  72. PREDNISOLONE. [Concomitant]
     Active Substance: PREDNISOLONE
     Dosage: 15 MG, UNK
     Route: 048
  73. MYCOPHENOLATE MOFETIL. [Concomitant]
     Active Substance: MYCOPHENOLATE MOFETIL
     Dosage: 500 MG, UNK
     Route: 048
  74. SOL-MELCORT [Concomitant]
     Active Substance: METHYLPREDNISOLONE SODIUM SUCCINATE
     Dosage: 1 G, UNK
     Route: 042
     Dates: end: 20120202
  75. PROGRAF [Concomitant]
     Active Substance: TACROLIMUS\TACROLIMUS ANHYDROUS
     Dosage: 0.9 MG, UNK
     Route: 048
  76. PROGRAF [Concomitant]
     Active Substance: TACROLIMUS\TACROLIMUS ANHYDROUS
     Dosage: 1.4 MG, UNK
     Route: 048
  77. PROGRAF [Concomitant]
     Active Substance: TACROLIMUS\TACROLIMUS ANHYDROUS
     Dosage: 1.4 MG, UNK
     Route: 048
  78. PROGRAF [Concomitant]
     Active Substance: TACROLIMUS\TACROLIMUS ANHYDROUS
     Dosage: 0.5 MG, UNK
     Route: 048
  79. BUFFERIN [Concomitant]
     Active Substance: ASPIRIN
     Indication: PROPHYLAXIS
     Dosage: 81 MG, UNK
     Route: 048
     Dates: end: 20120106
  80. CERTICAN [Suspect]
     Active Substance: EVEROLIMUS
     Indication: HEART TRANSPLANT
     Dosage: 1 MG, DAILY
     Route: 048
     Dates: start: 20111018, end: 20111021
  81. CERTICAN [Suspect]
     Active Substance: EVEROLIMUS
     Dosage: 1.75 MG, DAILY
     Route: 048
     Dates: start: 20111027, end: 20111031
  82. CERTICAN [Suspect]
     Active Substance: EVEROLIMUS
     Dosage: 3 MG, DAILY
     Route: 048
     Dates: start: 20111117, end: 20111117
  83. CERTICAN [Suspect]
     Active Substance: EVEROLIMUS
     Dosage: 1.5 MG DAILY
     Route: 048
     Dates: start: 20120128, end: 20120129
  84. CERTICAN [Suspect]
     Active Substance: EVEROLIMUS
     Dosage: 1.5 MG
     Route: 048
     Dates: start: 20120223, end: 20120226
  85. CERTICAN [Suspect]
     Active Substance: EVEROLIMUS
     Route: 048
     Dates: start: 20120125, end: 20120127
  86. CERTICAN [Suspect]
     Active Substance: EVEROLIMUS
     Route: 048
     Dates: start: 20120203, end: 20120209
  87. CERTICAN [Suspect]
     Active Substance: EVEROLIMUS
     Route: 048
     Dates: start: 20120227, end: 20120228
  88. PREDONINE [Suspect]
     Active Substance: PREDNISOLONE\PREDNISOLONE ACETATE\PREDNISOLONE SODIUM SUCCINATE
     Dosage: 25 MG, DAILY
     Route: 042
     Dates: start: 20111207, end: 20111211
  89. PREDONINE [Suspect]
     Active Substance: PREDNISOLONE\PREDNISOLONE ACETATE\PREDNISOLONE SODIUM SUCCINATE
     Dosage: 30 MG DAILY
     Route: 042
     Dates: start: 20120203, end: 20120207
  90. PROGRAF [Concomitant]
     Active Substance: TACROLIMUS\TACROLIMUS ANHYDROUS
     Dosage: 1.2 MG, UNK
     Route: 048
  91. PROGRAF [Concomitant]
     Active Substance: TACROLIMUS\TACROLIMUS ANHYDROUS
     Dosage: 1.4 MG, UNK
     Route: 048
  92. PROGRAF [Concomitant]
     Active Substance: TACROLIMUS\TACROLIMUS ANHYDROUS
     Dosage: 0.6 MG, UNK
     Route: 048
  93. CERTICAN [Suspect]
     Active Substance: EVEROLIMUS
     Dosage: 2.25 MG, DAILY
     Route: 048
     Dates: start: 20111104, end: 20111107
  94. CERTICAN [Suspect]
     Active Substance: EVEROLIMUS
     Dosage: 3.75 MG, DAILY
     Route: 048
     Dates: start: 20111124, end: 20111130
  95. CERTICAN [Suspect]
     Active Substance: EVEROLIMUS
     Dosage: 1.25 MG DAILY
     Route: 048
     Dates: start: 20111228, end: 20111231
  96. CERTICAN [Suspect]
     Active Substance: EVEROLIMUS
     Dosage: 1.5 MG DAILY
     Route: 048
     Dates: start: 20120101, end: 20120119
  97. CERTICAN [Suspect]
     Active Substance: EVEROLIMUS
     Dosage: 1 MG, QD
     Route: 048
     Dates: start: 20111018, end: 20111021
  98. CERTICAN [Suspect]
     Active Substance: EVEROLIMUS
     Dosage: 3 MG, QD
     Route: 048
     Dates: start: 20111117, end: 20111117
  99. CERTICAN [Suspect]
     Active Substance: EVEROLIMUS
     Route: 048
     Dates: start: 20111224, end: 20111225
  100. CERTICAN [Suspect]
     Active Substance: EVEROLIMUS
     Route: 048
     Dates: start: 20120101, end: 20120119
  101. CERTICAN [Suspect]
     Active Substance: EVEROLIMUS
     Route: 048
     Dates: start: 20120130, end: 20120202
  102. CELLCEPT [Concomitant]
     Active Substance: MYCOPHENOLATE MOFETIL\MYCOPHENOLATE MOFETIL HYDROCHLORIDE
     Indication: PRODUCT USED FOR UNKNOWN INDICATION
     Dosage: UNK
     Route: 065
     Dates: start: 20111129
  103. SOL-MELCORT [Concomitant]
     Active Substance: METHYLPREDNISOLONE SODIUM SUCCINATE
     Indication: HEART TRANSPLANT
     Dosage: 1 G, UNK
     Route: 042
     Dates: start: 20111129
  104. PROGRAF [Concomitant]
     Active Substance: TACROLIMUS\TACROLIMUS ANHYDROUS
     Dosage: 1.4 MG, UNK
     Route: 048
  105. PROGRAF [Concomitant]
     Active Substance: TACROLIMUS\TACROLIMUS ANHYDROUS
     Dosage: 1.4 MG, UNK
     Route: 048
  106. PROGRAF [Concomitant]
     Active Substance: TACROLIMUS\TACROLIMUS ANHYDROUS
     Dosage: 1.2 MG, UNK
     Route: 048
  107. PROGRAF [Concomitant]
     Active Substance: TACROLIMUS\TACROLIMUS ANHYDROUS
     Dosage: 0.4 MG, UNK
     Route: 048
  108. LIPITOR [Concomitant]
     Active Substance: ATORVASTATIN CALCIUM
     Indication: PRODUCT USED FOR UNKNOWN INDICATION
     Dosage: 5 MG, UNK
     Route: 048
     Dates: end: 20120119
  109. CERTICAN [Suspect]
     Active Substance: EVEROLIMUS
     Dosage: 1.5 MG, DAILY
     Route: 048
     Dates: start: 20111022, end: 20111026
  110. CERTICAN [Suspect]
     Active Substance: EVEROLIMUS
     Dosage: 2.75 MG, DAILY
     Route: 048
     Dates: start: 20111114, end: 20111116
  111. CERTICAN [Suspect]
     Active Substance: EVEROLIMUS
     Dosage: 2.5 MG DAILY
     Route: 048
     Dates: start: 20111217, end: 20111218
  112. CERTICAN [Suspect]
     Active Substance: EVEROLIMUS
     Dosage: 2.25 MG DAILY
     Route: 048
     Dates: start: 20111219, end: 20111220
  113. CERTICAN [Suspect]
     Active Substance: EVEROLIMUS
     Dosage: 2 MG DAILY
     Route: 048
     Dates: start: 20111221, end: 20111223
  114. CERTICAN [Suspect]
     Active Substance: EVEROLIMUS
     Dosage: 1.75 MG DAILY
     Route: 048
     Dates: start: 20120130, end: 20120202
  115. CERTICAN [Suspect]
     Active Substance: EVEROLIMUS
     Dosage: 0.25 MG, DAILY
     Route: 048
     Dates: start: 20120229, end: 20120307
  116. CERTICAN [Suspect]
     Active Substance: EVEROLIMUS
     Dosage: 1.75 MG, QD
     Route: 048
     Dates: start: 20111027, end: 20111031
  117. CERTICAN [Suspect]
     Active Substance: EVEROLIMUS
     Dosage: 2.5 MG, QD
     Route: 048
     Dates: start: 20111108, end: 20111113
  118. CERTICAN [Suspect]
     Active Substance: EVEROLIMUS
     Dosage: 2.75 MG, QD
     Route: 048
     Dates: start: 20111114, end: 20111116
  119. CERTICAN [Suspect]
     Active Substance: EVEROLIMUS
     Dosage: 3.25 MG, QD
     Route: 048
     Dates: start: 20111118, end: 20111121
  120. CERTICAN [Suspect]
     Active Substance: EVEROLIMUS
     Dosage: 3.5 MG, QD
     Route: 048
     Dates: start: 20111122, end: 20111123
  121. CERTICAN [Suspect]
     Active Substance: EVEROLIMUS
     Dosage: 3.5 MG, QD
     Route: 048
     Dates: start: 20111201, end: 20111207
  122. CERTICAN [Suspect]
     Active Substance: EVEROLIMUS
     Route: 048
     Dates: start: 20120120, end: 20120120
  123. CERTICAN [Suspect]
     Active Substance: EVEROLIMUS
     Route: 048
     Dates: start: 20120222, end: 20120222
  124. PREDONINE [Suspect]
     Active Substance: PREDNISOLONE\PREDNISOLONE ACETATE\PREDNISOLONE SODIUM SUCCINATE
     Dosage: 20 MG DAILY
     Route: 042
     Dates: start: 20120213, end: 20120219
  125. MYCOPHENOLATE MOFETIL. [Concomitant]
     Active Substance: MYCOPHENOLATE MOFETIL
     Dosage: 1750 MG, UNK
     Route: 048
  126. PROGRAF [Concomitant]
     Active Substance: TACROLIMUS\TACROLIMUS ANHYDROUS
     Dosage: 1.6 MG, UNK
     Route: 048
  127. PROGRAF [Concomitant]
     Active Substance: TACROLIMUS\TACROLIMUS ANHYDROUS
     Dosage: 1.8 MG, UNK
     Route: 048
  128. PROGRAF [Concomitant]
     Active Substance: TACROLIMUS\TACROLIMUS ANHYDROUS
     Dosage: 2.0 MG, UNK
     Route: 048
  129. PROGRAF [Concomitant]
     Active Substance: TACROLIMUS\TACROLIMUS ANHYDROUS
     Dosage: 2.6 MG, UNK
     Route: 048
  130. PROGRAF [Concomitant]
     Active Substance: TACROLIMUS\TACROLIMUS ANHYDROUS
     Dosage: 1.2 MG, UNK
     Route: 048
  131. PROGRAF [Concomitant]
     Active Substance: TACROLIMUS\TACROLIMUS ANHYDROUS
     Dosage: 0.2 MG, UNK
     Route: 048
     Dates: end: 20120307
  132. BAYASPIRIN [Concomitant]
     Active Substance: ASPIRIN
     Indication: PROPHYLAXIS
     Dosage: 100 MG, UNK
     Route: 048

REACTIONS (20)
  - Ileus paralytic [Unknown]
  - Ascites [Fatal]
  - Circulatory collapse [Fatal]
  - Pulmonary congestion [Fatal]
  - Vomiting [Fatal]
  - Pulmonary oedema [Fatal]
  - Gastrointestinal oedema [Fatal]
  - Hepatomegaly [Fatal]
  - Heart transplant rejection [Recovered/Resolved]
  - Lumbar vertebral fracture [Not Recovered/Not Resolved]
  - Blood cholesterol increased [Unknown]
  - Intestinal obstruction [Fatal]
  - Decreased appetite [Fatal]
  - Immunosuppressant drug level increased [Recovered/Resolved]
  - Respiratory failure [Fatal]
  - Gastrointestinal necrosis [Fatal]
  - Heart transplant rejection [Recovered/Resolved]
  - Septic shock [Fatal]
  - Lung disorder [Fatal]
  - Multiple organ dysfunction syndrome [Fatal]

NARRATIVE: CASE EVENT DATE: 20111128
